FAERS Safety Report 7309120-5 (Version None)
Quarter: 2011Q1

REPORT INFORMATION
  Report Type: 
  Country: None (occurrence: None)
  Receive Date: 20110223
  Receipt Date: 20110209
  Transmission Date: 20110831
  Serious: Yes (Hospitalization, Other)
  Sender: FDA-Public Use
  Company Number: PHHY2011TR11135

PATIENT

DRUGS (3)
  1. RISPERDONE [Suspect]
     Dosage: 4 MG/DAY
  2. OLANZAPINE [Suspect]
     Dosage: 15 MG/DAY
  3. SERTRALINE [Suspect]
     Dosage: 50 MG/DAY

REACTIONS (15)
  - ANHEDONIA [None]
  - MUSCLE RIGIDITY [None]
  - FEELING ABNORMAL [None]
  - SPEECH DISORDER [None]
  - DEPRESSED MOOD [None]
  - TREMOR [None]
  - FATIGUE [None]
  - DRUG INEFFECTIVE [None]
  - APATHY [None]
  - THYROID NEOPLASM [None]
  - WEIGHT INCREASED [None]
  - PSYCHOMOTOR RETARDATION [None]
  - EXTRAPYRAMIDAL DISORDER [None]
  - MAJOR DEPRESSION [None]
  - JEALOUS DELUSION [None]
